FAERS Safety Report 10477398 (Version 3)
Quarter: 2014Q4

REPORT INFORMATION
  Report Type: Spontaneous
  Country: HK (occurrence: HK)
  Receive Date: 20140926
  Receipt Date: 20141025
  Transmission Date: 20150528
  Serious: Yes (Hospitalization)
  Sender: FDA-Public Use
  Company Number: HK-JNJFOC-20040604996

PATIENT
  Age: 12 Month
  Sex: Male
  Weight: 9.2 kg

DRUGS (15)
  1. DOMPERIDONE [Suspect]
     Active Substance: DOMPERIDONE
     Indication: DIARRHOEA
     Route: 048
     Dates: start: 200308
  2. SACCHAROMYCES BOULARDII [Suspect]
     Active Substance: SACCHAROMYCES CEREVISIAE
     Indication: DIARRHOEA
     Route: 048
     Dates: start: 200308
  3. CEFACLOR. [Suspect]
     Active Substance: CEFACLOR
     Indication: UPPER RESPIRATORY TRACT INFECTION
     Route: 048
     Dates: start: 200308
  4. CHLORPHENIRAMINE [Suspect]
     Active Substance: CHLORPHENIRAMINE
     Indication: UPPER RESPIRATORY TRACT INFECTION
     Route: 065
     Dates: start: 200308
  5. PROMETHAZINE [Concomitant]
     Active Substance: PROMETHAZINE\PROMETHAZINE HYDROCHLORIDE
  6. KAOLIN/PECTIN [Concomitant]
     Route: 048
  7. TYLENOL [Suspect]
     Active Substance: ACETAMINOPHEN
     Indication: UPPER RESPIRATORY TRACT INFECTION
     Dosage: 120-125 MG/DOSE PO, 3 DAYS
     Route: 048
     Dates: start: 200308, end: 200308
  8. TYLENOL [Suspect]
     Active Substance: ACETAMINOPHEN
     Indication: UPPER RESPIRATORY TRACT INFECTION
     Dosage: 250 MG X 3 PRN RECTAL
     Route: 055
     Dates: start: 200308, end: 200308
  9. KIDDI PHARMATON [Suspect]
     Active Substance: MINERALS\VITAMINS
     Indication: UPPER RESPIRATORY TRACT INFECTION
     Route: 048
     Dates: start: 200308
  10. KAOLIN [Suspect]
     Active Substance: KAOLIN
     Indication: DIARRHOEA
     Dosage: 5 ML X 2, PO
     Route: 048
     Dates: start: 200308
  11. DIMENHYDRINATE. [Suspect]
     Active Substance: DIMENHYDRINATE
     Indication: VOMITING
     Route: 065
     Dates: start: 200308
  12. KAOLIN/PECTIN/DIMETHICONE/DICYCLOMINE [Concomitant]
     Dosage: ONCE, PO
     Route: 048
  13. TYLENOL [Suspect]
     Active Substance: ACETAMINOPHEN
     Indication: DIARRHOEA
     Dosage: 120-125 MG/DOSE PO, 3 DAYS
     Route: 048
     Dates: start: 200308, end: 200308
  14. CEFTIBUTEN [Suspect]
     Active Substance: CEFTIBUTEN
     Indication: DIARRHOEA
     Route: 048
     Dates: start: 200308
  15. TYLENOL [Suspect]
     Active Substance: ACETAMINOPHEN
     Route: 055

REACTIONS (18)
  - Gastroenteritis [Unknown]
  - Sepsis [Recovered/Resolved]
  - Urinary tract infection [Recovered/Resolved]
  - Overdose [Recovered/Resolved]
  - Lethargy [Unknown]
  - Shock [Unknown]
  - Blood creatine phosphokinase increased [Recovered/Resolved]
  - Ileus paralytic [Recovered/Resolved]
  - Renal disorder [Unknown]
  - Hypoglycaemia [Recovered/Resolved]
  - Left ventricular dysfunction [Unknown]
  - Dehydration [Unknown]
  - Disseminated intravascular coagulation [Recovered/Resolved]
  - Metabolic acidosis [Recovered/Resolved]
  - Ammonia increased [Recovered/Resolved]
  - Hepatotoxicity [Unknown]
  - Rhabdomyolysis [Unknown]
  - Renal failure [Recovered/Resolved]

NARRATIVE: CASE EVENT DATE: 2003
